FAERS Safety Report 21114919 (Version 1)
Quarter: 2022Q3

REPORT INFORMATION
  Report Type: Spontaneous
  Country: US (occurrence: US)
  Receive Date: 20220721
  Receipt Date: 20220721
  Transmission Date: 20221027
  Serious: No
  Sender: FDA-Public Use
  Company Number: US-LUNDBECK-DKLU3050160

PATIENT
  Age: 3 Year
  Sex: Female

DRUGS (1)
  1. SABRIL [Suspect]
     Active Substance: VIGABATRIN
     Indication: Product used for unknown indication
     Route: 048

REACTIONS (1)
  - Fatigue [Not Recovered/Not Resolved]
